FAERS Safety Report 7842862-1 (Version None)
Quarter: 2011Q4

REPORT INFORMATION
  Report Type: 
  Country: None (occurrence: None)
  Receive Date: 20111025
  Receipt Date: 20100426
  Transmission Date: 20120403
  Serious: No
  Sender: FDA-Public Use
  Company Number: US-BAYER-201020940NA

PATIENT
  Age: 67 Year
  Sex: Male

DRUGS (4)
  1. MAXZIDE [Concomitant]
  2. TESTOSTERONE [Concomitant]
     Dosage: UNK UNK, Q3WK
     Dates: start: 20100201
  3. EFFEXOR XR [Concomitant]
     Dosage: UNK
     Dates: start: 20100301
  4. LEVITRA [Suspect]
     Indication: ERECTILE DYSFUNCTION
     Dosage: 10 MG, PRN
     Route: 048
     Dates: start: 20100401

REACTIONS (1)
  - SPONTANEOUS PENILE ERECTION [None]
